FAERS Safety Report 7980625-7 (Version None)
Quarter: 2011Q4

REPORT INFORMATION
  Report Type: 
  Country: None (occurrence: None)
  Receive Date: 20111214
  Receipt Date: 20111130
  Transmission Date: 20120403
  Serious: Yes (Death)
  Sender: FDA-Public Use
  Company Number: US-WATSON-2011-20592

PATIENT
  Sex: Male
  Weight: 72 kg

DRUGS (6)
  1. AMLODIPINE [Concomitant]
     Indication: HYPERTENSION
     Dosage: 5 MG, DAILY
     Route: 048
     Dates: start: 20010101, end: 20111124
  2. RAPAFLO [Suspect]
     Indication: PROSTATOMEGALY
     Dosage: 8 MG, DAILY
     Route: 048
     Dates: start: 20111123, end: 20111124
  3. MULTI-VITAMINS [Concomitant]
     Indication: ROUTINE HEALTH MAINTENANCE
     Dosage: ONE TABLET DAILY
     Route: 048
  4. RAPAFLO [Suspect]
     Indication: URINARY INCONTINENCE
  5. HYDROCHLOROTHIAZIDE [Concomitant]
     Indication: HYPERTENSION
     Dosage: 25 MG, DAILY
     Route: 048
     Dates: start: 20010101, end: 20111124
  6. LISINOPRIL [Concomitant]
     Indication: HYPERTENSION
     Dosage: 40 MG, DAILY
     Route: 048
     Dates: start: 20010101, end: 20111124

REACTIONS (5)
  - ANGINA PECTORIS [None]
  - CARDIAC FAILURE [None]
  - PAIN IN EXTREMITY [None]
  - RESTLESSNESS [None]
  - ABDOMINAL DISCOMFORT [None]
